FAERS Safety Report 22028792 (Version 2)
Quarter: 2023Q2

REPORT INFORMATION
  Report Type: Spontaneous
  Country: JP (occurrence: JP)
  Receive Date: 20230223
  Receipt Date: 20230620
  Transmission Date: 20230721
  Serious: Yes (Other)
  Sender: FDA-Public Use
  Company Number: JP-OTSUKA-2023_004561

PATIENT
  Age: 56 Year
  Sex: Female

DRUGS (9)
  1. BUSULFEX [Suspect]
     Active Substance: BUSULFAN
     Indication: Autologous haematopoietic stem cell transplant
     Dosage: UNK
     Route: 065
  2. BUSULFEX [Suspect]
     Active Substance: BUSULFAN
     Indication: Premedication
  3. BUSULFEX [Suspect]
     Active Substance: BUSULFAN
     Indication: Central nervous system lymphoma
  4. RITUXIMAB [Suspect]
     Active Substance: RITUXIMAB
     Indication: Autologous haematopoietic stem cell transplant
     Dosage: UNK
     Route: 065
  5. RITUXIMAB [Suspect]
     Active Substance: RITUXIMAB
     Indication: Premedication
     Dosage: 2 COURSES
     Route: 065
  6. RITUXIMAB [Suspect]
     Active Substance: RITUXIMAB
     Indication: Central nervous system lymphoma
     Dosage: 7 COURSES
     Route: 065
  7. THIOTEPA [Suspect]
     Active Substance: THIOTEPA
     Indication: Autologous haematopoietic stem cell transplant
     Dosage: UNK
     Route: 065
  8. THIOTEPA [Suspect]
     Active Substance: THIOTEPA
     Indication: Premedication
  9. THIOTEPA [Suspect]
     Active Substance: THIOTEPA
     Indication: Central nervous system lymphoma

REACTIONS (2)
  - Oral disorder [Recovering/Resolving]
  - Diarrhoea [Recovering/Resolving]
